FAERS Safety Report 7206609-4 (Version None)
Quarter: 2011Q1

REPORT INFORMATION
  Report Type: 
  Country: None (occurrence: None)
  Receive Date: 20110103
  Receipt Date: 20101228
  Transmission Date: 20110831
  Serious: Yes (Other)
  Sender: FDA-Public Use
  Company Number: US-JNJFOC-20100708082

PATIENT
  Sex: Male
  Weight: 99.79 kg

DRUGS (7)
  1. DURAGESIC-50 [Suspect]
     Indication: NECK PAIN
     Route: 062
  2. LORCET-HD [Concomitant]
     Indication: BREAKTHROUGH PAIN
     Dosage: 10-650 TABLET EVERY 6 HOURS AS NEEDED
     Route: 048
  3. LYRICA [Concomitant]
     Indication: PAIN MANAGEMENT
     Route: 048
  4. MELOXICAM [Concomitant]
     Route: 048
  5. DURAGESIC-50 [Suspect]
     Route: 062
  6. UNKNOWN MEDICATION [Concomitant]
     Indication: HYPOTHYROIDISM
     Route: 048
  7. LISINOPRIL [Concomitant]
     Indication: CARDIAC DISORDER
     Dosage: 20 MG/TABLET/12.5 MG/DAILY
     Route: 048

REACTIONS (4)
  - CARDIAC DISORDER [None]
  - BLOOD CHOLESTEROL INCREASED [None]
  - RESTLESS LEGS SYNDROME [None]
  - THERAPEUTIC RESPONSE DECREASED [None]
